FAERS Safety Report 14592852 (Version 1)
Quarter: 2018Q1

REPORT INFORMATION
  Report Type: Report from Study
  Country: IT (occurrence: IT)
  Receive Date: 20180302
  Receipt Date: 20180302
  Transmission Date: 20180509
  Serious: Yes (Hospitalization, Other)
  Sender: FDA-Public Use
  Company Number: IT-PFIZER INC-2018079940

PATIENT
  Age: 15 Year
  Sex: Female

DRUGS (2)
  1. PIROXICAM. [Suspect]
     Active Substance: PIROXICAM
     Indication: DRUG PROVOCATION TEST
     Dosage: 36 MG, MAXIMAL DOSE
     Route: 065
  2. CELECOXIB. [Suspect]
     Active Substance: CELECOXIB
     Indication: DRUG PROVOCATION TEST
     Dosage: 4.7 MG/KG, FOR A CUMULATIVE DOSE OF 235 MG
     Route: 065

REACTIONS (5)
  - Eyelid oedema [Recovered/Resolved]
  - Swelling face [Recovered/Resolved]
  - Drug hypersensitivity [Unknown]
  - Lip swelling [Recovered/Resolved]
  - Rhinitis allergic [Recovered/Resolved]
